FAERS Safety Report 13239303 (Version 1)
Quarter: 2017Q1

REPORT INFORMATION
  Report Type: Spontaneous
  Country: JP (occurrence: CA)
  Receive Date: 20170216
  Receipt Date: 20170216
  Transmission Date: 20170428
  Serious: Yes (Other)
  Sender: FDA-Public Use
  Company Number: JP-SUNOVION-2017SUN000669

PATIENT
  Age: 14 Year
  Sex: Male

DRUGS (2)
  1. AMOXICILLIN. [Concomitant]
     Active Substance: AMOXICILLIN
     Dosage: UNK
     Dates: start: 20160327
  2. ALVESCO [Suspect]
     Active Substance: CICLESONIDE
     Indication: ASTHMA
     Dosage: UNK, UNK BID
     Route: 055
     Dates: start: 20160326, end: 20160327

REACTIONS (6)
  - Syncope [Unknown]
  - Decreased appetite [Unknown]
  - Dizziness [Unknown]
  - Blindness [Not Recovered/Not Resolved]
  - Psychomotor hyperactivity [Unknown]
  - Hypoacusis [Recovered/Resolved]

NARRATIVE: CASE EVENT DATE: 20160327
